FAERS Safety Report 7042056-6 (Version None)
Quarter: 2010Q4

REPORT INFORMATION
  Report Type: 
  Country: None (occurrence: None)
  Receive Date: 20101013
  Receipt Date: 20100330
  Transmission Date: 20110411
  Serious: No
  Sender: FDA-Public Use
  Company Number: US-ASTRAZENECA-2010SE08373

PATIENT
  Age: 21113 Day
  Sex: Female

DRUGS (3)
  1. SYMBICORT [Suspect]
     Dosage: 80/4.5 MCG UNKNOWN FREQUENCY
     Route: 055
     Dates: start: 20091101
  2. SYMBICORT [Suspect]
     Dosage: 160/4.5 MCG BID
     Route: 055
  3. AVALIDE [Concomitant]
     Indication: HYPERTENSION

REACTIONS (1)
  - VITREOUS DETACHMENT [None]
